FAERS Safety Report 7715207-5 (Version None)
Quarter: 2011Q3

REPORT INFORMATION
  Report Type: 
  Country: None (occurrence: None)
  Receive Date: 20110822
  Receipt Date: 20110802
  Transmission Date: 20111222
  Serious: Yes (Congenital Anomaly)
  Sender: FDA-Public Use
  Company Number: 2011MA011394

PATIENT
  Age: 5 Month
  Sex: Male

DRUGS (1)
  1. DICLOFENAC SODIUM [Suspect]
     Indication: MATERNAL EXPOSURE DURING PREGNANCY
     Dosage: 100 MG;TID

REACTIONS (12)
  - LOW SET EARS [None]
  - SINGLE FUNCTIONAL KIDNEY [None]
  - MATERNAL DRUGS AFFECTING FOETUS [None]
  - FACIAL ASYMMETRY [None]
  - HIGH ARCHED PALATE [None]
  - HYPERTELORISM OF ORBIT [None]
  - NIPPLE DISORDER [None]
  - ATRIAL SEPTAL DEFECT [None]
  - FAILURE TO THRIVE [None]
  - LOWER RESPIRATORY TRACT INFECTION [None]
  - PATENT DUCTUS ARTERIOSUS [None]
  - PULMONARY HYPERTENSION [None]
